FAERS Safety Report 9982629 (Version 1)
Quarter: 2014Q1

REPORT INFORMATION
  Report Type: Report from Study
  Country: US (occurrence: US)
  Receive Date: 20140307
  Receipt Date: 20140307
  Transmission Date: 20141002
  Serious: Yes (Other)
  Sender: FDA-Public Use
  Company Number: US-ABBVIE-13P-163-1175898-00

PATIENT
  Age: 57 Year
  Sex: Male
  Weight: 90.8 kg

DRUGS (4)
  1. HUMIRA [Suspect]
     Indication: RHEUMATOID ARTHRITIS
     Route: 058
     Dates: start: 2009, end: 201108
  2. HUMIRA [Suspect]
     Route: 058
     Dates: start: 201109, end: 201310
  3. METFORMIN [Concomitant]
     Indication: DIABETES MELLITUS
  4. UNKNOWN BLOOD PRESSURE MEDICATION [Concomitant]
     Indication: HYPERTENSION

REACTIONS (2)
  - Prostate cancer [Recovered/Resolved]
  - Prostatic specific antigen increased [Recovered/Resolved]
